FAERS Safety Report 5564795-6 (Version None)
Quarter: 2007Q4

REPORT INFORMATION
  Report Type: 
  Country: None (occurrence: None)
  Receive Date: 20071214
  Receipt Date: 20071214
  Transmission Date: 20080405
  Serious: Yes (Other)
  Sender: FDA-Public Use
  Company Number: None

PATIENT
  Sex: Female
  Weight: 81.1939 kg

DRUGS (7)
  1. TEKTURNA [Suspect]
     Indication: HYPERTENSION
     Dosage: 150 MG DAILY PO
     Route: 048
     Dates: start: 20070712, end: 20071112
  2. TEKTURNA [Suspect]
     Indication: PROTEINURIA
     Dosage: 150 MG DAILY PO
     Route: 048
     Dates: start: 20070712, end: 20071112
  3. FUROSEMIDE [Concomitant]
  4. GLYBURIDE [Concomitant]
  5. LISINOPRIL [Concomitant]
  6. AVAPRO [Concomitant]
  7. NIFEDIPINE [Concomitant]

REACTIONS (3)
  - ANAEMIA [None]
  - OEDEMA PERIPHERAL [None]
  - SWELLING FACE [None]
